FAERS Safety Report 4458039-6 (Version None)
Quarter: 2004Q3

REPORT INFORMATION
  Report Type: 
  Country: None (occurrence: None)
  Receive Date: 20040922
  Receipt Date: 20040908
  Transmission Date: 20050211
  Serious: Yes (Hospitalization, Other)
  Sender: FDA-Public Use
  Company Number: JP_040804106

PATIENT
  Age: 72 Year
  Sex: Male
  Weight: 42 kg

DRUGS (11)
  1. PERMAX [Suspect]
     Indication: PARKINSON'S DISEASE
     Dosage: 50 UG/1 DAY
     Dates: start: 20030601, end: 20040703
  2. CABASER (GABERGOLINE) [Concomitant]
  3. MADOPAR [Concomitant]
  4. GASMOTIN (MOSAPRIDE CITRATE) [Concomitant]
  5. BIOFERMIN [Concomitant]
  6. EURODIN (ESTAZOLAM) [Concomitant]
  7. FAMOTIDINE [Concomitant]
  8. PROMAC (POLAPRENZINC) [Concomitant]
  9. UBRETID (DISTIGMINE BROMIDE) [Concomitant]
  10. HARNAL (TAMLSULOSIN HYDROCHLORIDE) [Concomitant]
  11. NAUZELIN (DOMPERIDONE) [Concomitant]

REACTIONS (6)
  - ALANINE AMINOTRANSFERASE INCREASED [None]
  - ASPARTATE AMINOTRANSFERASE INCREASED [None]
  - BLOOD ALKALINE PHOSPHATASE INCREASED [None]
  - BLOOD LACTATE DEHYDROGENASE INCREASED [None]
  - LIVER DISORDER [None]
  - PERICARDIAL EFFUSION [None]
